FAERS Safety Report 9416578 (Version 2)
Quarter: 2013Q4

REPORT INFORMATION
  Report Type: Spontaneous
  Country: US (occurrence: None)
  Receive Date: 20130719
  Receipt Date: 20131002
  Transmission Date: 20140711
  Serious: Yes (Hospitalization)
  Sender: FDA-Public Use
  Company Number: 13-07-004

PATIENT
  Age: 67 Year
  Sex: Female
  Weight: 53.52 kg

DRUGS (12)
  1. ROPINIROLE [Suspect]
     Indication: RESTLESS LEGS SYNDROME
     Route: 048
  2. SPIRIVA [Concomitant]
  3. ADVAIR [Concomitant]
  4. IPRATROPIUM BROMIDE AND ALBUTEROL SULFATE [Concomitant]
  5. CELEXA [Concomitant]
  6. PREDNISONE [Concomitant]
  7. COLCRYS [Concomitant]
  8. MUCINEX [Concomitant]
  9. OMEPRAZOLE [Concomitant]
  10. LASIX [Concomitant]
  11. LISINOPRIL [Concomitant]
  12. WELLBUTRIN [Concomitant]

REACTIONS (4)
  - Gait disturbance [None]
  - Dyspnoea [None]
  - Somnolence [None]
  - Road traffic accident [None]
